FAERS Safety Report 24596438 (Version 1)
Quarter: 2024Q4

REPORT INFORMATION
  Report Type: Spontaneous
  Country: US (occurrence: US)
  Receive Date: 20241110
  Receipt Date: 20241110
  Transmission Date: 20250115
  Serious: No
  Sender: SANOFI AVENTIS
  Company Number: US-SA-2024SA305767

PATIENT
  Age: 57 Year
  Sex: Female

DRUGS (6)
  1. DUPIXENT [Suspect]
     Active Substance: DUPILUMAB
     Indication: Neurodermatitis
     Dosage: 300 MG, OTHER
     Route: 058
     Dates: start: 20230124
  2. ZYRTEC [Concomitant]
     Active Substance: CETIRIZINE HYDROCHLORIDE
  3. KIRKLAND SIGNATURE ALLERCLEAR [Concomitant]
     Active Substance: LORATADINE
  4. VITAMINS [Concomitant]
     Active Substance: VITAMINS
  5. PROGESTERONE [Concomitant]
     Active Substance: PROGESTERONE
  6. ESTROGEL [Concomitant]
     Active Substance: ESTRADIOL

REACTIONS (2)
  - Ocular hyperaemia [Unknown]
  - Eye swelling [Unknown]
